FAERS Safety Report 6809709-3 (Version None)
Quarter: 2010Q2

REPORT INFORMATION
  Report Type: 
  Country: None (occurrence: None)
  Receive Date: 20100630
  Receipt Date: 20100623
  Transmission Date: 20101027
  Serious: Yes (Other)
  Sender: FDA-Public Use
  Company Number: CA-PFIZER INC-2010078495

PATIENT
  Age: 45 Year
  Sex: Female

DRUGS (3)
  1. LIPITOR [Suspect]
     Dosage: 10 MG, UNK
  2. NEXIUM [Concomitant]
     Dosage: UNK
  3. DICETEL [Concomitant]
     Dosage: UNK

REACTIONS (1)
  - CATARACT [None]
